FAERS Safety Report 9100580 (Version 2)
Quarter: 2013Q1

REPORT INFORMATION
  Report Type: Spontaneous
  Country: JP (occurrence: JP)
  Receive Date: 20130215
  Receipt Date: 20130305
  Transmission Date: 20140127
  Serious: Yes (Other)
  Sender: FDA-Public Use
  Company Number: JP-JNJFOC-20130206437

PATIENT
  Age: 78 Year
  Sex: Female

DRUGS (4)
  1. TRAMCET [Suspect]
     Indication: PAIN
     Dosage: ONCE A DAY
     Route: 048
     Dates: end: 20130221
  2. LOXONIN [Suspect]
     Indication: BACK PAIN
     Dosage: ONCE A DAY
     Route: 048
     Dates: end: 20130207
  3. MOBIC [Suspect]
     Indication: BACK PAIN
     Dosage: ONCE A DAY
     Route: 048
     Dates: end: 20130207
  4. LYRICA [Concomitant]
     Indication: BACK PAIN
     Dosage: ONCE A DAY
     Route: 048
     Dates: end: 20130207

REACTIONS (1)
  - Gastric ulcer [Recovering/Resolving]
